FAERS Safety Report 4817534-8 (Version None)
Quarter: 2005Q4

REPORT INFORMATION
  Report Type: 
  Country: None (occurrence: None)
  Receive Date: 20051031
  Receipt Date: 20051017
  Transmission Date: 20060501
  Serious: Yes (Death)
  Sender: FDA-Public Use
  Company Number: 2005143045

PATIENT
  Age: 82 Year
  Sex: Male

DRUGS (9)
  1. DALTEPARIN SODIUM [Suspect]
     Indication: THROMBOSIS PROPHYLAXIS
     Dosage: 5000 I.U. (5000 I.U., 1 IN 1 D) SUBCUTANEOUS
     Route: 058
     Dates: start: 20050817, end: 20050821
  2. ENALAPRIL [Concomitant]
  3. DIPIDOLOR (PIRITRAMIDE) [Concomitant]
  4. ANALGIN (METAMIZOLE SODIUM) [Concomitant]
  5. TEOTARD (THEOPHYLLINE) [Concomitant]
  6. GLURENORM ^BOEHRINGER^ (GLIQUIDONE) [Concomitant]
  7. HEMINEVRIN (CLOMETHIAZOLE EDISILATE) [Concomitant]
  8. QUINAX (AZAPENTACENE) [Concomitant]
  9. XALATAN [Concomitant]

REACTIONS (1)
  - PULMONARY EMBOLISM [None]
